FAERS Safety Report 7181635-2 (Version None)
Quarter: 2010Q4

REPORT INFORMATION
  Report Type: 
  Country: None (occurrence: None)
  Receive Date: 20101221
  Receipt Date: 20100427
  Transmission Date: 20110411
  Serious: No
  Sender: FDA-Public Use
  Company Number: US-AMGEN-KDL408902

PATIENT

DRUGS (19)
  1. ENBREL [Suspect]
     Indication: PRODUCT USED FOR UNKNOWN INDICATION
     Dosage: 50 MG, QWK
     Route: 058
  2. PREDNISONE [Concomitant]
  3. TAMOXIFEN CITRATE [Concomitant]
     Dosage: 20 MG, UNK
  4. SOTALOL HYDROCHLORIDE [Concomitant]
     Dosage: 80 MG, UNK
  5. LORAZEPAM [Concomitant]
     Dosage: .5 MG, UNK
  6. SIMVASTATIN [Concomitant]
     Dosage: 20 MG, UNK
  7. ASPIRIN [Concomitant]
     Dosage: 325 MG, UNK
  8. FOLIC ACID [Concomitant]
     Dosage: 1 MG, UNK
  9. ASCORBIC ACID [Concomitant]
     Dosage: 1000 MG, UNK
  10. GINGKO BILOBA [Concomitant]
     Dosage: 60 MG, UNK
  11. MULTI-VITAMINS [Concomitant]
     Dosage: UNK UNK, UNK
  12. VITAMIN B COMPLEX [Concomitant]
     Dosage: UNK UNK, UNK
  13. FISH OIL [Concomitant]
     Dosage: UNK UNK, UNK
  14. CALCIUM [Concomitant]
     Dosage: 500 MG, UNK
  15. MAGNESIUM [Concomitant]
     Dosage: 300 MG, UNK
  16. ACTONEL [Concomitant]
     Dosage: 60 MG, UNK
  17. METHOTREXATE [Concomitant]
     Dosage: 20 MG, UNK
  18. HERBAL EXTRACT NOS [Concomitant]
  19. UNSPECIFIED NUTRITIONAL SUPPLEMENT [Concomitant]

REACTIONS (3)
  - INJECTION SITE ERYTHEMA [None]
  - INJECTION SITE REACTION [None]
  - INJECTION SITE SWELLING [None]
